FAERS Safety Report 4697851-5 (Version None)
Quarter: 2005Q2

REPORT INFORMATION
  Report Type: 
  Country: None (occurrence: None)
  Receive Date: 20050119
  Receipt Date: 20050119
  Transmission Date: 20051028
  Serious: No
  Sender: FDA-Public Use
  Company Number: None

PATIENT
  Sex: Female
  Weight: 41.4588 kg

DRUGS (1)
  1. K-DUR 10 [Suspect]
     Dosage: 10 MEQ II BID  LIFETIME

REACTIONS (2)
  - DIZZINESS [None]
  - NAUSEA [None]
